FAERS Safety Report 4502395-7 (Version None)
Quarter: 2004Q4

REPORT INFORMATION
  Report Type: 
  Country: None (occurrence: None)
  Receive Date: 20041110
  Receipt Date: 20041025
  Transmission Date: 20050328
  Serious: Yes (Hospitalization)
  Sender: FDA-Public Use
  Company Number: T04-GER-07360-01

PATIENT
  Age: 30 Year
  Sex: Male

DRUGS (8)
  1. CITALOPRAM HYDROBROMIDE [Suspect]
     Dosage: 40 MG QD PO
     Route: 048
     Dates: start: 20030218, end: 20030304
  2. CITALOPRAM HYDROBROMIDE [Suspect]
     Dosage: 40 MG QD PO
     Route: 048
     Dates: start: 20030305, end: 20030330
  3. CITALOPRAM HYDROBROMIDE [Suspect]
     Dosage: 20 MG QD PO
     Route: 048
     Dates: start: 20030401, end: 20030402
  4. CITALOPRAM HYDROBROMIDE [Suspect]
     Dosage: 40 MG QD PO
     Route: 048
     Dates: start: 20030124, end: 20030217
  5. ZYPREXA [Suspect]
     Dosage: 5 MG QD PO
     Route: 048
     Dates: start: 20030222, end: 20030303
  6. ZYPREXA [Suspect]
     Dosage: 10 MG QD PO
     Route: 048
     Dates: start: 20030125, end: 20030221
  7. TRIMIPRAMINE MALEATE [Concomitant]
  8. ZOPICLONE [Concomitant]

REACTIONS (2)
  - DRUG INTERACTION [None]
  - MYOCLONUS [None]
